FAERS Safety Report 4779720-5 (Version None)
Quarter: 2005Q3

REPORT INFORMATION
  Report Type: 
  Country: None (occurrence: None)
  Receive Date: 20050914
  Receipt Date: 20050427
  Transmission Date: 20060218
  Serious: Yes (Hospitalization)
  Sender: FDA-Public Use
  Company Number: 163-20785-03030053

PATIENT
  Age: 57 Year
  Sex: Male
  Weight: 97.3 kg

DRUGS (30)
  1. THALOMID [Suspect]
     Indication: MULTIPLE MYELOMA
     Dosage: 400 MG, QD, ORAL; SEE IMAGE
     Route: 048
     Dates: start: 20000210, end: 20000217
  2. THALOMID [Suspect]
     Indication: MULTIPLE MYELOMA
     Dosage: 400 MG, QD, ORAL; SEE IMAGE
     Route: 048
     Dates: start: 20000222, end: 20000419
  3. THALOMID [Suspect]
     Indication: MULTIPLE MYELOMA
     Dosage: 400 MG, QD, ORAL; SEE IMAGE
     Route: 048
     Dates: start: 20000512, end: 20000612
  4. THALOMID [Suspect]
     Indication: MULTIPLE MYELOMA
     Dosage: 400 MG, QD, ORAL; SEE IMAGE
     Route: 048
     Dates: start: 20000601, end: 20000903
  5. THALOMID [Suspect]
     Indication: MULTIPLE MYELOMA
     Dosage: 400 MG, QD, ORAL; SEE IMAGE
     Route: 048
     Dates: start: 20000803, end: 20000903
  6. THALOMID [Suspect]
     Indication: MULTIPLE MYELOMA
     Dosage: 400 MG, QD, ORAL; SEE IMAGE
     Route: 048
     Dates: start: 20010128, end: 20010210
  7. THALOMID [Suspect]
     Indication: MULTIPLE MYELOMA
     Dosage: 400 MG, QD, ORAL; SEE IMAGE
     Route: 048
     Dates: start: 20010211, end: 20010217
  8. THALOMID [Suspect]
     Indication: MULTIPLE MYELOMA
     Dosage: 400 MG, QD, ORAL; SEE IMAGE
     Route: 048
     Dates: start: 20010218, end: 20010314
  9. THALOMID [Suspect]
     Indication: MULTIPLE MYELOMA
     Dosage: 400 MG, QD, ORAL; SEE IMAGE
     Route: 048
     Dates: start: 20010315, end: 20010322
  10. THALOMID [Suspect]
     Indication: MULTIPLE MYELOMA
     Dosage: 400 MG, QD, ORAL; SEE IMAGE
     Route: 048
     Dates: start: 20010323, end: 20010325
  11. THALOMID [Suspect]
     Indication: MULTIPLE MYELOMA
     Dosage: 400 MG, QD, ORAL; SEE IMAGE
     Route: 048
     Dates: start: 20010326, end: 20010328
  12. THALOMID [Suspect]
     Indication: MULTIPLE MYELOMA
     Dosage: 400 MG, QD, ORAL; SEE IMAGE
     Route: 048
     Dates: start: 20010329, end: 20010331
  13. THALOMID [Suspect]
     Indication: MULTIPLE MYELOMA
     Dosage: 400 MG, QD, ORAL; SEE IMAGE
     Route: 048
     Dates: start: 20010408, end: 20010421
  14. THALOMID [Suspect]
     Indication: MULTIPLE MYELOMA
     Dosage: 400 MG, QD, ORAL; SEE IMAGE
     Route: 048
     Dates: start: 20010422, end: 20010502
  15. THALOMID [Suspect]
     Indication: MULTIPLE MYELOMA
     Dosage: 400 MG, QD, ORAL; SEE IMAGE
     Route: 048
     Dates: start: 20010503, end: 20010505
  16. THALOMID [Suspect]
     Indication: MULTIPLE MYELOMA
     Dosage: 400 MG, QD, ORAL; SEE IMAGE
     Route: 048
     Dates: start: 20010506, end: 20010512
  17. THALOMID [Suspect]
     Indication: MULTIPLE MYELOMA
     Dosage: 400 MG, QD, ORAL; SEE IMAGE
     Route: 048
     Dates: start: 20010513, end: 20010609
  18. THALOMID [Suspect]
     Indication: MULTIPLE MYELOMA
     Dosage: 400 MG, QD, ORAL; SEE IMAGE
     Route: 048
     Dates: start: 20010610, end: 20020627
  19. THALOMID [Suspect]
     Indication: MULTIPLE MYELOMA
     Dosage: 400 MG, QD, ORAL; SEE IMAGE
     Route: 048
     Dates: start: 20020925, end: 20021125
  20. THALOMID [Suspect]
     Indication: MULTIPLE MYELOMA
     Dosage: 400 MG, QD, ORAL; SEE IMAGE
     Route: 048
     Dates: start: 20021213, end: 20030113
  21. THALOMID [Suspect]
     Indication: MULTIPLE MYELOMA
     Dosage: 400 MG, QD, ORAL; SEE IMAGE
     Route: 048
     Dates: start: 20030121, end: 20030221
  22. THALOMID [Suspect]
     Indication: MULTIPLE MYELOMA
     Dosage: 400 MG, QD, ORAL; SEE IMAGE
     Route: 048
     Dates: start: 20030320, end: 20030420
  23. THALOMID [Suspect]
     Indication: MULTIPLE MYELOMA
     Dosage: 400 MG, QD, ORAL; SEE IMAGE
     Route: 048
     Dates: start: 20030423, end: 20030523
  24. THALOMID [Suspect]
     Indication: MULTIPLE MYELOMA
     Dosage: 400 MG, QD, ORAL; SEE IMAGE
     Route: 048
     Dates: start: 20030603, end: 20030925
  25. THALOMID [Suspect]
     Indication: MULTIPLE MYELOMA
     Dosage: 400 MG, QD, ORAL; SEE IMAGE
     Route: 048
     Dates: start: 20031029, end: 20040630
  26. THALOMID [Suspect]
     Indication: MULTIPLE MYELOMA
     Dosage: 400 MG, QD, ORAL; SEE IMAGE
     Route: 048
     Dates: start: 20050222
  27. INTERFERON ALPHA-2B (INTERFERON ALFA-2B) (INJECTION) [Suspect]
     Indication: MULTIPLE MYELOMA
     Dosage: 2 MILLION UNITS, TIW, SUBCUTANEOUS; SEE IMAGE
     Route: 058
     Dates: start: 20020107, end: 20021110
  28. INTERFERON ALPHA-2B (INTERFERON ALFA-2B) (INJECTION) [Suspect]
     Indication: MULTIPLE MYELOMA
     Dosage: 2 MILLION UNITS, TIW, SUBCUTANEOUS; SEE IMAGE
     Route: 058
     Dates: start: 20020107
  29. DEXAMETHASONE [Suspect]
     Indication: MULTIPLE MYELOMA
     Dosage: PULSE, INTRAVENOUS
     Route: 042
     Dates: end: 20020126
  30. AREDIA [Concomitant]

REACTIONS (3)
  - ASTHMA [None]
  - PYREXIA [None]
  - VIRAL INFECTION [None]
